FAERS Safety Report 6484739-2 (Version None)
Quarter: 2009Q4

REPORT INFORMATION
  Report Type: 
  Country: None (occurrence: None)
  Receive Date: 20091209
  Receipt Date: 20091204
  Transmission Date: 20100525
  Serious: Yes (Other)
  Sender: FDA-Public Use
  Company Number: FR-ABBOTT-09P-056-0612154-00

PATIENT

DRUGS (3)
  1. HUMIRA [Suspect]
     Indication: PSORIASIS
  2. PNEUMO 23 VACCINE SERUM [Suspect]
     Indication: DRUG USE FOR UNKNOWN INDICATION
  3. SWINE FLU VACCINE, MONOVALENT [Suspect]
     Indication: DRUG USE FOR UNKNOWN INDICATION

REACTIONS (1)
  - ECZEMA [None]
